FAERS Safety Report 6052745-8 (Version None)
Quarter: 2009Q1

REPORT INFORMATION
  Report Type: 
  Country: None (occurrence: None)
  Receive Date: 20090127
  Receipt Date: 20090121
  Transmission Date: 20090719
  Serious: Yes (Other)
  Sender: FDA-Public Use
  Company Number: JP-BRISTOL-MYERS SQUIBB COMPANY-14480669

PATIENT
  Age: 53 Year
  Sex: Female

DRUGS (1)
  1. KENACORT [Suspect]
     Indication: EYE OPERATION
     Route: 031
     Dates: start: 20071201, end: 20071201

REACTIONS (1)
  - RETINAL VASCULAR DISORDER [None]
